FAERS Safety Report 8001910-9 (Version None)
Quarter: 2011Q4

REPORT INFORMATION
  Report Type: 
  Country: None (occurrence: None)
  Receive Date: 20111222
  Receipt Date: 20111215
  Transmission Date: 20120403
  Serious: Yes (Hospitalization, Other)
  Sender: FDA-Public Use
  Company Number: CH-ABBOTT-11P-151-0883560-00

PATIENT
  Age: 62 Year
  Sex: Male

DRUGS (10)
  1. METOPROLOL SUCCINATE [Concomitant]
     Indication: PRODUCT USED FOR UNKNOWN INDICATION
     Route: 048
  2. REYATAZ [Interacting]
     Indication: ASYMPTOMATIC HIV INFECTION
     Route: 048
  3. MIDAZOLAM HCL [Concomitant]
     Indication: PRODUCT USED FOR UNKNOWN INDICATION
     Route: 048
  4. IMODIUM [Concomitant]
     Indication: PRODUCT USED FOR UNKNOWN INDICATION
     Dosage: IN RESERVE
  5. BETAMETHASONE [Interacting]
     Indication: BACK PAIN
     Dosage: 1 INJECTION IN TOTAL OF RETARD FORMULATION
     Route: 050
     Dates: start: 20110901, end: 20110901
  6. COSOPT [Concomitant]
     Indication: PRODUCT USED FOR UNKNOWN INDICATION
  7. CONDROSULF [Concomitant]
     Indication: PRODUCT USED FOR UNKNOWN INDICATION
     Route: 048
  8. NORVIR [Suspect]
     Indication: ASYMPTOMATIC HIV INFECTION
     Route: 048
  9. TRIAMCINOLONE [Interacting]
     Indication: BACK PAIN
     Dosage: 1 INJECTION IN TOTAL OF RETARD FORMULATION
  10. VENTOLIN [Concomitant]
     Indication: PRODUCT USED FOR UNKNOWN INDICATION

REACTIONS (5)
  - DIARRHOEA [None]
  - WEIGHT DECREASED [None]
  - DRUG INTERACTION [None]
  - ADRENAL INSUFFICIENCY [None]
  - CUSHING'S SYNDROME [None]
